FAERS Safety Report 25910329 (Version 1)
Quarter: 2025Q4

REPORT INFORMATION
  Report Type: Spontaneous
  Country: RU (occurrence: RU)
  Receive Date: 20251012
  Receipt Date: 20251012
  Transmission Date: 20260117
  Serious: Yes (Hospitalization)
  Sender: JOHNSON AND JOHNSON
  Company Number: RU-BAYER-2025A133939

PATIENT
  Age: 59 Year
  Sex: Male
  Weight: 81 kg

DRUGS (2)
  1. XARELTO [Suspect]
     Active Substance: RIVAROXABAN
     Indication: Pulmonary embolism
     Dosage: 10 MG, QD
     Route: 048
     Dates: start: 202407
  2. PREGABALIN [Suspect]
     Active Substance: PREGABALIN
     Indication: Peripheral sensorimotor neuropathy
     Dosage: 150 MG, QD
     Route: 048
     Dates: start: 20250115

REACTIONS (3)
  - Metastases to central nervous system [Recovered/Resolved with Sequelae]
  - Headache [Unknown]
  - Daydreaming [Unknown]

NARRATIVE: CASE EVENT DATE: 20250826
